FAERS Safety Report 12555075 (Version 2)
Quarter: 2016Q3

REPORT INFORMATION
  Report Type: Report from Study
  Country: DE (occurrence: DE)
  Receive Date: 20160714
  Receipt Date: 20160718
  Transmission Date: 20161109
  Serious: Yes (Hospitalization)
  Sender: FDA-Public Use
  Company Number: DE-ROCHE-1791384

PATIENT
  Age: 2 Year
  Sex: Male

DRUGS (1)
  1. GANCICLOVIR. [Suspect]
     Active Substance: GANCICLOVIR
     Indication: CYTOMEGALOVIRUS INFECTION
     Dosage: DOSE PER WEIGHT 55.56MG/KG AND TREATMENT PERIOD 91 DAYS.
     Route: 065

REACTIONS (3)
  - Infection [Recovered/Resolved]
  - Agranulocytosis [Recovering/Resolving]
  - Transplant rejection [Recovered/Resolved]
